FAERS Safety Report 7003706-3 (Version None)
Quarter: 2010Q3

REPORT INFORMATION
  Report Type: 
  Country: None (occurrence: None)
  Receive Date: 20100920
  Receipt Date: 20090720
  Transmission Date: 20110219
  Serious: No
  Sender: FDA-Public Use
  Company Number: US-WYE-H10232409

PATIENT
  Sex: Female
  Weight: 77.18 kg

DRUGS (1)
  1. PROTONIX [Suspect]
     Indication: GASTROOESOPHAGEAL REFLUX DISEASE
     Route: 048
     Dates: start: 20090714

REACTIONS (3)
  - INCREASED UPPER AIRWAY SECRETION [None]
  - SWOLLEN TONGUE [None]
  - THROAT IRRITATION [None]
